FAERS Safety Report 9466983 (Version 1)
Quarter: 2013Q3

REPORT INFORMATION
  Report Type: Report from Study
  Country: US (occurrence: US)
  Receive Date: 20130820
  Receipt Date: 20130820
  Transmission Date: 20140515
  Serious: Yes (Hospitalization, Other)
  Sender: FDA-Public Use
  Company Number: US-GLAXOSMITHKLINE-A0978649B

PATIENT
  Age: 54 Year
  Sex: Female
  Weight: 77.8 kg

DRUGS (2)
  1. GSK2118436 [Suspect]
     Indication: METASTATIC MALIGNANT MELANOMA
     Dosage: 75MG TWICE PER DAY
     Route: 048
     Dates: start: 20120425
  2. GSK1120212 [Suspect]
     Indication: METASTATIC MALIGNANT MELANOMA
     Dosage: 2MG PER DAY
     Route: 048
     Dates: start: 20120425

REACTIONS (8)
  - Thrombocytopenia [Recovered/Resolved]
  - Confusional state [Recovered/Resolved]
  - Asthenia [Recovered/Resolved]
  - Anaemia [Recovered/Resolved]
  - Fatigue [Recovered/Resolved]
  - Back pain [Recovered/Resolved]
  - Pyrexia [Recovered/Resolved]
  - Pyrexia [Recovered/Resolved]
